FAERS Safety Report 5404589-5 (Version None)
Quarter: 2007Q3

REPORT INFORMATION
  Report Type: 
  Country: None (occurrence: None)
  Receive Date: 20070713
  Receipt Date: 20070514
  Transmission Date: 20080115
  Serious: Yes (Hospitalization)
  Sender: FDA-Public Use
  Company Number: US-JNJFOC-20070504312

PATIENT
  Age: 20 Year
  Sex: Female

DRUGS (5)
  1. ORTHO EVRA [Suspect]
     Indication: CONTRACEPTION
     Dosage: TRANSDERMAL
     Route: 062
     Dates: start: 20020101, end: 20040201
  2. SINGULAIR [Concomitant]
  3. AMOXICILLIN [Concomitant]
  4. PULMICORT [Concomitant]
  5. ALBUTEROL [Concomitant]

REACTIONS (1)
  - PULMONARY EMBOLISM [None]
